FAERS Safety Report 15758155 (Version 1)
Quarter: 2018Q4

REPORT INFORMATION
  Report Type: Spontaneous
  Country: DE (occurrence: DE)
  Receive Date: 20181225
  Receipt Date: 20181225
  Transmission Date: 20190205
  Serious: Yes (Congenital Anomaly)
  Sender: FDA-Public Use
  Company Number: DE-ACCORD-097513

PATIENT
  Sex: Male
  Weight: 1.4 kg

DRUGS (9)
  1. METFORMIN [Suspect]
     Active Substance: METFORMIN HYDROCHLORIDE
     Indication: TYPE 2 DIABETES MELLITUS
     Route: 064
  2. CERGEM [Concomitant]
     Active Substance: GEMEPROST
     Indication: LABOUR INDUCTION
     Route: 064
  3. OXYTOCIN/OXYTOCIN CITRATE [Concomitant]
     Indication: LABOUR INDUCTION
     Route: 064
  4. CYTOTEC [Concomitant]
     Active Substance: MISOPROSTOL
     Indication: LABOUR INDUCTION
     Route: 064
  5. QUETIAPINE. [Suspect]
     Active Substance: QUETIAPINE
     Indication: DEPRESSION
     Dosage: 400(MG)/ INDICATION NOT CLEAR.
     Route: 064
     Dates: start: 20161222, end: 20170802
  6. NOVORAPID [Concomitant]
     Active Substance: INSULIN ASPART
     Indication: TYPE 2 DIABETES MELLITUS
     Dosage: 58 (IE/D )/ 20-20-18-0
     Route: 064
  7. LANTUS [Concomitant]
     Active Substance: INSULIN GLARGINE
     Indication: TYPE 2 DIABETES MELLITUS
     Dosage: 24 (IE/D )/ 0-0-0-24
     Route: 064
     Dates: start: 20170310, end: 20170607
  8. FOLSAURE [Concomitant]
     Active Substance: FOLIC ACID
     Indication: PROPHYLAXIS OF NEURAL TUBE DEFECT
     Route: 064
  9. DIPIPERON [Suspect]
     Active Substance: PIPAMPERONE
     Indication: DEPRESSION
     Dosage: INDICATION NOT CLEAR.
     Route: 064

REACTIONS (4)
  - Foetal exposure during pregnancy [Unknown]
  - Renal aplasia [Not Recovered/Not Resolved]
  - Congenital cystic kidney disease [Not Recovered/Not Resolved]
  - Heart disease congenital [Not Recovered/Not Resolved]
